FAERS Safety Report 4888874-1 (Version None)
Quarter: 2005Q4

REPORT INFORMATION
  Report Type: 
  Country: None (occurrence: None)
  Receive Date: 20051215
  Receipt Date: 20050622
  Transmission Date: 20060501
  Serious: Yes (Hospitalization)
  Sender: FDA-Public Use
  Company Number: 2005091896

PATIENT
  Age: 34 Year
  Sex: Male
  Weight: 102.0593 kg

DRUGS (1)
  1. BEXTRA [Suspect]
     Indication: FOOT OPERATION
     Dosage: ORAL
     Route: 048
     Dates: start: 20040101

REACTIONS (6)
  - COLITIS [None]
  - CONSTIPATION [None]
  - DECREASED APPETITE [None]
  - PAIN [None]
  - PYREXIA [None]
  - SKIN PAPILLOMA [None]
